FAERS Safety Report 7672771-2 (Version None)
Quarter: 2011Q3

REPORT INFORMATION
  Report Type: 
  Country: None (occurrence: None)
  Receive Date: 20110809
  Receipt Date: 20110729
  Transmission Date: 20111222
  Serious: Yes (Hospitalization, Other)
  Sender: FDA-Public Use
  Company Number: US-BAYER-201035690NA

PATIENT
  Age: 29 Year
  Sex: Female
  Weight: 92.971 kg

DRUGS (13)
  1. YAZ [Suspect]
     Indication: ACNE
     Dosage: UNK
     Route: 048
     Dates: start: 20090801, end: 20100101
  2. FIORICET [Concomitant]
  3. SEPTRA DS [Concomitant]
  4. ATIVAN [Concomitant]
  5. PHENERGAN HCL [Concomitant]
     Indication: NAUSEA
     Dosage: 25 MG, UNK
     Route: 042
  6. MORPHINE [Concomitant]
     Dosage: 2 MG, PRN
     Route: 042
  7. LORTAB [Concomitant]
     Dosage: 5 MG, PRN
  8. CITALOPRAM HYDROBROMIDE [Concomitant]
  9. BUTALBITAL [Concomitant]
  10. CELEXA [Concomitant]
     Dosage: 20 MG, QD
  11. AMITRIPTYLINE HCL [Concomitant]
     Indication: PAIN PROPHYLAXIS
  12. MAXALT [Concomitant]
  13. TOPAMAX [Concomitant]

REACTIONS (1)
  - DEEP VEIN THROMBOSIS [None]
